FAERS Safety Report 15461514 (Version 1)
Quarter: 2018Q4

REPORT INFORMATION
  Report Type: Spontaneous
  Country: DZ (occurrence: DZ)
  Receive Date: 20181003
  Receipt Date: 20181003
  Transmission Date: 20190204
  Serious: Yes (Death, Other)
  Sender: FDA-Public Use
  Company Number: DZ-BIOMARINAP-DZ-2018-120170

PATIENT
  Age: 12 Year
  Sex: Male
  Weight: 23 kg

DRUGS (2)
  1. ALDURAZYME [Suspect]
     Active Substance: LARONIDASE
     Indication: PRODUCT USED FOR UNKNOWN INDICATION
     Dosage: 200 INTERNATIONAL UNIT/KILOGRAM
     Route: 041
     Dates: start: 2015
  2. ALDURAZYME [Suspect]
     Active Substance: LARONIDASE
     Dosage: 8.7 INTERNATIONAL UNIT/KILOGRAM, QOW
     Route: 041
     Dates: start: 2005

REACTIONS (1)
  - Respiratory distress [Fatal]

NARRATIVE: CASE EVENT DATE: 20180714
